FAERS Safety Report 9742593 (Version 1)
Quarter: 2013Q4

REPORT INFORMATION
  Report Type: Spontaneous
  Country: US (occurrence: US)
  Receive Date: 20131210
  Receipt Date: 20131210
  Transmission Date: 20140711
  Serious: No
  Sender: FDA-Public Use
  Company Number: US-GILEAD-2009-0024501

PATIENT
  Sex: Female
  Weight: 63.5 kg

DRUGS (9)
  1. LETAIRIS [Suspect]
     Indication: PULMONARY ARTERIAL HYPERTENSION
     Route: 048
     Dates: start: 20090318
  2. COUMADIN [Concomitant]
  3. CYPROHEPTADINE [Concomitant]
  4. COZAAR [Concomitant]
  5. LASIX [Concomitant]
  6. PREDISONE [Concomitant]
  7. LIPITOR [Concomitant]
  8. GLYBURIDE [Concomitant]
  9. KLOR-CON [Concomitant]

REACTIONS (1)
  - Palpitations [Unknown]
